FAERS Safety Report 25083988 (Version 1)
Quarter: 2025Q1

REPORT INFORMATION
  Report Type: Spontaneous
  Country: US (occurrence: US)
  Receive Date: 20250317
  Receipt Date: 20250317
  Transmission Date: 20250408
  Serious: No
  Sender: ALVOGEN
  Company Number: None

PATIENT

DRUGS (1)
  1. LISDEXAMFETAMINE [Suspect]
     Active Substance: LISDEXAMFETAMINE
     Indication: Product used for unknown indication

REACTIONS (6)
  - Brain fog [Recovered/Resolved]
  - Lethargy [Recovered/Resolved]
  - Feeling jittery [Recovered/Resolved]
  - Product substitution issue [Unknown]
  - Therapeutic response changed [Unknown]
  - Product physical consistency issue [Unknown]
